FAERS Safety Report 5371124-X (Version None)
Quarter: 2007Q2

REPORT INFORMATION
  Report Type: 
  Country: None (occurrence: None)
  Receive Date: 20070622
  Receipt Date: 20070607
  Transmission Date: 20071010
  Serious: Yes (Other)
  Sender: FDA-Public Use
  Company Number: 07-001291

PATIENT
  Age: 38 Year
  Sex: Male

DRUGS (1)
  1. DORYX [Suspect]
     Indication: BRUCELLOSIS
     Dosage: QD, ORAL
     Route: 048

REACTIONS (5)
  - ARTHRALGIA [None]
  - ASTHENIA [None]
  - BRUCELLOSIS [None]
  - DISEASE RECURRENCE [None]
  - DRUG INEFFECTIVE [None]
